FAERS Safety Report 24836884 (Version 1)
Quarter: 2025Q1

REPORT INFORMATION
  Report Type: Spontaneous
  Country: US (occurrence: US)
  Receive Date: 20250113
  Receipt Date: 20250113
  Transmission Date: 20250408
  Serious: No
  Sender: RECORDATI
  Company Number: US-RECORDATI RARE DISEASE INC.-2024006343

PATIENT

DRUGS (1)
  1. OSILODROSTAT [Suspect]
     Active Substance: OSILODROSTAT
     Indication: Product used for unknown indication

REACTIONS (1)
  - Vision blurred [Unknown]
